FAERS Safety Report 5133577-1 (Version None)
Quarter: 2006Q4

REPORT INFORMATION
  Report Type: 
  Country: None (occurrence: None)
  Receive Date: 20061018
  Receipt Date: 20061005
  Transmission Date: 20070319
  Serious: Yes (Other)
  Sender: FDA-Public Use
  Company Number: 2006124133

PATIENT

DRUGS (2)
  1. GEODON [Suspect]
  2. ZYPREXA [Suspect]

REACTIONS (4)
  - CARDIO-RESPIRATORY ARREST [None]
  - ELECTROCARDIOGRAM QT PROLONGED [None]
  - HEAD INJURY [None]
  - SYNCOPE [None]
